FAERS Safety Report 4686569-0 (Version None)
Quarter: 2005Q2

REPORT INFORMATION
  Report Type: 
  Country: None (occurrence: None)
  Receive Date: 20050607
  Receipt Date: 20050525
  Transmission Date: 20051028
  Serious: Yes (Hospitalization, Other)
  Sender: FDA-Public Use
  Company Number: USA031254118

PATIENT
  Age: 72 Year
  Sex: Male
  Weight: 114 kg

DRUGS (8)
  1. HUMALOG [Suspect]
     Dates: start: 20030101
  2. HUMALOG MIX 75/25 [Suspect]
     Dosage: 25 U IN THE MORNING
     Dates: start: 20030101
  3. HUMULIN N [Suspect]
     Indication: DIABETES MELLITUS
     Dosage: 50 U AT BEDTIME
     Dates: start: 20030901
  4. NOVOLOG MIX 70/30 [Concomitant]
  5. AMARYL [Suspect]
  6. GLUCOPHAGE [Concomitant]
  7. ACTOS [Concomitant]
  8. ATIVAN [Concomitant]

REACTIONS (9)
  - ARTHROPATHY [None]
  - BLOOD GLUCOSE INCREASED [None]
  - DEVICE FAILURE [None]
  - HIP ARTHROPLASTY [None]
  - KNEE ARTHROPLASTY [None]
  - OEDEMA PERIPHERAL [None]
  - PHARMACEUTICAL PRODUCT COMPLAINT [None]
  - QUADRUPLE VESSEL BYPASS GRAFT [None]
  - WEIGHT INCREASED [None]
